FAERS Safety Report 13194425 (Version 1)
Quarter: 2017Q1

REPORT INFORMATION
  Report Type: Report from Study
  Country: US (occurrence: US)
  Receive Date: 20170207
  Receipt Date: 20170207
  Transmission Date: 20170428
  Serious: Yes (Other)
  Sender: FDA-Public Use
  Company Number: US-JAZZ-2016-US-022906

PATIENT
  Age: 37 Year
  Sex: Female

DRUGS (13)
  1. KLONOPIN [Concomitant]
     Active Substance: CLONAZEPAM
     Indication: PREMENSTRUAL SYNDROME
     Dosage: UNK
     Dates: start: 201501
  2. KLONOPIN [Concomitant]
     Active Substance: CLONAZEPAM
     Indication: ANXIETY
  3. PROAIR HFA [Concomitant]
     Active Substance: ALBUTEROL SULFATE
     Indication: PRODUCT USED FOR UNKNOWN INDICATION
     Dosage: UNK
     Dates: start: 20151119
  4. XYREM [Suspect]
     Active Substance: SODIUM OXYBATE
     Indication: CATAPLEXY
     Dosage: 3 G, BID
     Route: 048
     Dates: start: 201605, end: 201606
  5. ALBUTEROL                          /00139501/ [Concomitant]
     Active Substance: ALBUTEROL
     Indication: ASTHMA
  6. XYREM [Suspect]
     Active Substance: SODIUM OXYBATE
     Route: 048
  7. MULTI-DAY VITAMIN [Concomitant]
     Indication: VITAMIN SUPPLEMENTATION
  8. ADDERALL [Concomitant]
     Active Substance: AMPHETAMINE ASPARTATE\AMPHETAMINE SULFATE\DEXTROAMPHETAMINE SACCHARATE\DEXTROAMPHETAMINE SULFATE
     Indication: NARCOLEPSY
     Dosage: UNK
     Dates: start: 20151119
  9. L-CARNITINE                        /00878601/ [Concomitant]
     Active Substance: LEVOCARNITINE
     Indication: SOMNOLENCE
     Dosage: UNK
     Dates: start: 201506
  10. XYREM [Suspect]
     Active Substance: SODIUM OXYBATE
     Indication: NARCOLEPSY
     Dosage: 2.25 G, BID
     Route: 048
     Dates: start: 201605, end: 201605
  11. XYREM [Suspect]
     Active Substance: SODIUM OXYBATE
     Dosage: 3.75 G, BID
     Route: 048
     Dates: start: 201606
  12. IRON [Concomitant]
     Active Substance: IRON
     Indication: MINERAL SUPPLEMENTATION
  13. FLOVENT HFA [Concomitant]
     Active Substance: FLUTICASONE PROPIONATE
     Indication: ASTHMA
     Dosage: UNK
     Dates: start: 20151119

REACTIONS (10)
  - Condition aggravated [Not Recovered/Not Resolved]
  - Muscle twitching [Recovering/Resolving]
  - Drug effect decreased [Unknown]
  - Vomiting [Recovering/Resolving]
  - Cataplexy [Not Recovered/Not Resolved]
  - Product taste abnormal [Unknown]
  - Feeling abnormal [Recovering/Resolving]
  - Narcolepsy [Not Recovered/Not Resolved]
  - Pain [Recovering/Resolving]
  - Memory impairment [Recovering/Resolving]

NARRATIVE: CASE EVENT DATE: 201611
